FAERS Safety Report 8586559-1 (Version None)
Quarter: 2012Q3

REPORT INFORMATION
  Report Type: 
  Country: None (occurrence: None)
  Receive Date: 20120810
  Receipt Date: 20120802
  Transmission Date: 20120928
  Serious: Yes (Hospitalization)
  Sender: FDA-Public Use
  Company Number: US-JNJFOC-20120802077

PATIENT
  Sex: Female
  Weight: 58.97 kg

DRUGS (2)
  1. DURAGESIC-100 [Suspect]
     Indication: ARTHRITIS
     Dosage: 100 UG/HR AND 100 UG/HR
     Route: 062
  2. DURAGESIC-100 [Suspect]
     Route: 062

REACTIONS (9)
  - APPLICATION SITE ERYTHEMA [None]
  - PNEUMONIA [None]
  - DRUG ADMINISTERED AT INAPPROPRIATE SITE [None]
  - WRONG TECHNIQUE IN DRUG USAGE PROCESS [None]
  - DERMATITIS CONTACT [None]
  - FEAR OF DEATH [None]
  - APPLICATION SITE INFECTION [None]
  - APPLICATION SITE RASH [None]
  - PRODUCT QUALITY ISSUE [None]
